FAERS Safety Report 9105695 (Version 3)
Quarter: 2013Q2

REPORT INFORMATION
  Report Type: Spontaneous
  Country: US (occurrence: US)
  Receive Date: 20130221
  Receipt Date: 20130627
  Transmission Date: 20140414
  Serious: Yes (Other)
  Sender: FDA-Public Use
  Company Number: US-GLAXOSMITHKLINE-A1013105A

PATIENT
  Age: 76 Year
  Sex: Male
  Weight: 48.2 kg

DRUGS (8)
  1. ADVAIR [Suspect]
     Indication: EMPHYSEMA
     Dosage: 1PUFF TWICE PER DAY
     Route: 055
     Dates: start: 2011
  2. ALBUTEROL [Concomitant]
  3. ALLOPURINOL [Concomitant]
  4. KYTRIL [Concomitant]
  5. FINASTERIDE [Concomitant]
  6. BABY ASPIRIN [Concomitant]
  7. NEURONTIN [Concomitant]
  8. COMPAZINE [Concomitant]

REACTIONS (8)
  - Mental impairment [Recovering/Resolving]
  - Hypoxia [Unknown]
  - Memory impairment [Unknown]
  - Feeling abnormal [Unknown]
  - Inhalation therapy [Unknown]
  - Emphysema [Unknown]
  - Dyspnoea [Unknown]
  - Product quality issue [Unknown]
